FAERS Safety Report 20862755 (Version 1)
Quarter: 2022Q2

REPORT INFORMATION
  Report Type: Spontaneous
  Country: JP (occurrence: JP)
  Receive Date: 20220523
  Receipt Date: 20220523
  Transmission Date: 20220721
  Serious: Yes (Other)
  Sender: FDA-Public Use
  Company Number: JP-ORGANON-O2205JPN001603

PATIENT
  Age: 16 Year
  Sex: Male

DRUGS (7)
  1. ALENDRONATE SODIUM [Suspect]
     Active Substance: ALENDRONATE SODIUM
     Dosage: 35 MG/WEEK
     Route: 048
  2. METHYLPREDNISOLONE [Concomitant]
     Active Substance: METHYLPREDNISOLONE
     Dosage: 1 MILLIGRAM/KILOGRAM, QW (3 CONSECUTIVE DAYS ONCE A WEEK, THREE COURSES); PULSE THERAPY
     Route: 042
  3. MIZORIBINE [Concomitant]
     Active Substance: MIZORIBINE
     Dosage: 200 MG/DAY
  4. MIZORIBINE [Concomitant]
     Active Substance: MIZORIBINE
     Dosage: GRADUALLY INCREASED TO 300 MG/DAY
  5. MYCOPHENOLATE MOFETIL [Concomitant]
     Active Substance: MYCOPHENOLATE MOFETIL
     Dosage: 1000 MG/DAY
  6. PREDNISOLONE [Concomitant]
     Active Substance: PREDNISOLONE
     Dosage: 20 MG/2 DAYS
     Route: 048
  7. PREDNISOLONE [Concomitant]
     Active Substance: PREDNISOLONE
     Dosage: INCREASED TO 40 MG/2 DAYS
     Route: 048

REACTIONS (2)
  - Spinal fracture [Unknown]
  - Spondylolysis [Unknown]
